FAERS Safety Report 7789801-X (Version None)
Quarter: 2011Q3

REPORT INFORMATION
  Report Type: 
  Country: None (occurrence: None)
  Receive Date: 20110930
  Receipt Date: 20110729
  Transmission Date: 20111222
  Serious: No
  Sender: FDA-Public Use
  Company Number: US-ASTRAZENECA-2008UW15903

PATIENT
  Age: 58 Year
  Sex: Female
  Weight: 74.8 kg

DRUGS (8)
  1. SYNTHROID [Concomitant]
  2. OXYCONTIN [Concomitant]
  3. NEURONTIN [Concomitant]
  4. ARIMIDEX [Suspect]
     Route: 048
     Dates: start: 20060101
  5. KEPPRA [Concomitant]
  6. GABITRIL [Concomitant]
  7. ARIMIDEX [Suspect]
     Indication: BREAST CANCER
     Route: 048
     Dates: start: 20050101
  8. THYROID REPLACEMENT MED [Concomitant]

REACTIONS (15)
  - HOT FLUSH [None]
  - OSTEOPENIA [None]
  - OESTRADIOL INCREASED [None]
  - BLOOD CORTISOL DECREASED [None]
  - HEPATIC STEATOSIS [None]
  - NIGHT SWEATS [None]
  - BLOOD CORTICOTROPHIN DECREASED [None]
  - WEIGHT INCREASED [None]
  - MUSCLE SPASMS [None]
  - BLOOD CHOLESTEROL INCREASED [None]
  - PAIN [None]
  - BLOOD PRESSURE INCREASED [None]
  - PITUITARY-DEPENDENT CUSHING'S SYNDROME [None]
  - BLOOD TESTOSTERONE INCREASED [None]
  - BLOOD TRIGLYCERIDES INCREASED [None]
